FAERS Safety Report 7490163-6 (Version None)
Quarter: 2011Q2

REPORT INFORMATION
  Report Type: 
  Country: None (occurrence: None)
  Receive Date: 20110519
  Receipt Date: 20110422
  Transmission Date: 20111010
  Serious: Yes (Hospitalization, Other)
  Sender: FDA-Public Use
  Company Number: US-BAYER-201034897NA

PATIENT
  Age: 41 Year
  Sex: Female
  Weight: 93.878 kg

DRUGS (5)
  1. YASMIN [Suspect]
     Indication: CONTRACEPTION
     Dosage: UNK UNK, QD
     Dates: start: 20040901, end: 20070901
  2. SINGULAIR [Concomitant]
     Dosage: 10 MG, UNK
  3. ZYPREXA [Concomitant]
     Dosage: 2.5 MG, UNK
  4. ADVAIR DISKUS 100/50 [Concomitant]
     Dosage: 100 UNK, UNK
  5. FLUOXETINE [Concomitant]
     Dosage: 20 MG, UNK

REACTIONS (3)
  - BACK PAIN [None]
  - GALLBLADDER DISORDER [None]
  - CHOLECYSTITIS [None]
